FAERS Safety Report 12822447 (Version 1)
Quarter: 2016Q4

REPORT INFORMATION
  Report Type: Spontaneous
  Country: US (occurrence: US)
  Receive Date: 20161006
  Receipt Date: 20161006
  Transmission Date: 20170207
  Serious: No
  Sender: FDA-Public Use
  Company Number: US-SHIONOGI, INC-2016000733

PATIENT
  Sex: Female

DRUGS (5)
  1. OSPHENA [Suspect]
     Active Substance: OSPEMIFENE
     Indication: VULVOVAGINAL DRYNESS
  2. AZO CRANBERRY [Concomitant]
     Indication: PROPHYLAXIS
     Dosage: UNK
     Route: 065
  3. TRIMO SAN [Concomitant]
     Active Substance: OXYQUINOLINE SULFATE\SODIUM LAURYL SULFATE
     Indication: PRODUCT USED FOR UNKNOWN INDICATION
     Dosage: UNK, EVERY 3 DAYS
     Route: 065
  4. BLACK COHOSH                       /01456801/ [Concomitant]
     Active Substance: BLACK COHOSH
     Indication: HOT FLUSH
     Dosage: UNK
     Route: 065
  5. OSPHENA [Suspect]
     Active Substance: OSPEMIFENE
     Indication: DYSPAREUNIA
     Dosage: 60 MG, QD AT BREASKFAST TIME WITH FOOD
     Route: 065
     Dates: start: 201605

REACTIONS (6)
  - Heart rate increased [Unknown]
  - Therapeutic response unexpected [Unknown]
  - Hot flush [Unknown]
  - Labelled drug-disease interaction medication error [Unknown]
  - Muscle spasms [Unknown]
  - Vaginal discharge [Unknown]

NARRATIVE: CASE EVENT DATE: 2016
